FAERS Safety Report 7157458-7 (Version None)
Quarter: 2010Q4

REPORT INFORMATION
  Report Type: 
  Country: None (occurrence: None)
  Receive Date: 20101214
  Receipt Date: 20101210
  Transmission Date: 20110411
  Serious: Yes (Death)
  Sender: FDA-Public Use
  Company Number: B0683087A

PATIENT
  Sex: Male

DRUGS (3)
  1. SEROXAT [Suspect]
     Indication: DEPRESSION
     Route: 048
     Dates: start: 20100401, end: 20100601
  2. UNSPECIFIED MEDICATION [Concomitant]
     Indication: DIZZINESS
  3. ASPIRIN [Concomitant]

REACTIONS (4)
  - DEATH [None]
  - GINGIVAL BLEEDING [None]
  - NEOPLASM MALIGNANT [None]
  - PLATELET COUNT DECREASED [None]
